FAERS Safety Report 9964155 (Version 1)
Quarter: 2014Q1

REPORT INFORMATION
  Report Type: Report from Study
  Country: US (occurrence: US)
  Receive Date: 20140305
  Receipt Date: 20140305
  Transmission Date: 20141002
  Serious: Yes (Other)
  Sender: FDA-Public Use
  Company Number: US-BAXTER-2014BAX009990

PATIENT
  Age: 81 Year
  Sex: 0

DRUGS (2)
  1. CYTOXAN TABLETS (CYCLOPHOSPHAMIDE TABLETS, USP) [Suspect]
     Indication: CHRONIC LYMPHOCYTIC LEUKAEMIA
     Route: 048
     Dates: start: 20110526, end: 20120309
  2. CYTOXAN TABLETS (CYCLOPHOSPHAMIDE TABLETS, USP) [Suspect]
     Route: 048
     Dates: start: 20110526, end: 20110725

REACTIONS (2)
  - Squamous cell carcinoma of skin [Unknown]
  - Squamous cell carcinoma of skin [Unknown]
